FAERS Safety Report 5011819-0 (Version None)
Quarter: 2006Q2

REPORT INFORMATION
  Report Type: 
  Country: None (occurrence: None)
  Receive Date: 20060526
  Receipt Date: 20060320
  Transmission Date: 20061013
  Serious: Yes (Death)
  Sender: FDA-Public Use
  Company Number: US-AVENTIS-200612792US

PATIENT
  Age: 49 Year
  Sex: Male

DRUGS (12)
  1. RIFAMPIN [Suspect]
     Indication: TUBERCULOSIS
     Dates: start: 20001229, end: 20010228
  2. PYRAZINAMIDE [Suspect]
     Indication: TUBERCULOSIS
     Dates: start: 20001229, end: 20010228
  3. COMBIVIR [Concomitant]
     Dosage: DOSE: UNK
  4. AMBIEN [Concomitant]
     Dosage: DOSE: UNK
  5. NEURONTIN [Concomitant]
     Dosage: DOSE: UNK
  6. BACTRIM [Concomitant]
     Dosage: DOSE: UNK
  7. PROZAC [Concomitant]
     Dosage: DOSE: UNK
  8. MOTRIN [Concomitant]
     Dosage: DOSE: UNK
  9. PROCARDIA [Concomitant]
     Dosage: DOSE: UNK
  10. ANTIVIRALS FOR SYSTEMIC USE [Concomitant]
     Dosage: DOSE: UNK
  11. AMBIEN [Concomitant]
     Dosage: DOSE: UNK
  12. COMBIVIR [Concomitant]
     Dosage: DOSE: UNK

REACTIONS (6)
  - ALANINE AMINOTRANSFERASE INCREASED [None]
  - ASPARTATE AMINOTRANSFERASE INCREASED [None]
  - BILIRUBIN CONJUGATED INCREASED [None]
  - BLOOD BILIRUBIN INCREASED [None]
  - HEPATITIS [None]
  - HEPATOCELLULAR DAMAGE [None]
